FAERS Safety Report 11777079 (Version 1)
Quarter: 2015Q4

REPORT INFORMATION
  Report Type: Spontaneous
  Country: US (occurrence: None)
  Receive Date: 20151124
  Receipt Date: 20151124
  Transmission Date: 20160304
  Serious: No
  Sender: FDA-Public Use
  Company Number: None

PATIENT
  Age: 24 Year
  Sex: Female
  Weight: 104.33 kg

DRUGS (4)
  1. FLONASE [Concomitant]
     Active Substance: FLUTICASONE PROPIONATE
  2. CETIRIZINE HYDROCHLORIDE. [Suspect]
     Active Substance: CETIRIZINE HYDROCHLORIDE
     Indication: EYE PRURITUS
     Dosage: 1 PILL
     Route: 048
     Dates: start: 20151001, end: 20151123
  3. PRENATAL VITAMIN [Concomitant]
     Active Substance: VITAMINS
  4. CETIRIZINE HYDROCHLORIDE. [Suspect]
     Active Substance: CETIRIZINE HYDROCHLORIDE
     Indication: NASAL PRURITUS
     Dosage: 1 PILL
     Route: 048
     Dates: start: 20151001, end: 20151123

REACTIONS (4)
  - Therapy cessation [None]
  - Pruritus generalised [None]
  - Drug dependence [None]
  - Exposure during pregnancy [None]

NARRATIVE: CASE EVENT DATE: 20151123
